FAERS Safety Report 5870682-6 (Version None)
Quarter: 2008Q3

REPORT INFORMATION
  Report Type: 
  Country: None (occurrence: None)
  Receive Date: 20080904
  Receipt Date: 20080904
  Transmission Date: 20090109
  Serious: Yes (Hospitalization)
  Sender: FDA-Public Use
  Company Number: PHEH1997US00510

PATIENT
  Sex: Female
  Weight: 68 kg

DRUGS (7)
  1. NEORAL [Suspect]
     Route: 048
     Dates: start: 19950408
  2. PREDNISONE [Concomitant]
  3. IMURAN [Concomitant]
  4. CLOTRIMAZOLE [Concomitant]
  5. PROCARDIA [Concomitant]
  6. AMPHOJEL (ALUMINIUM HYDROXIDE GEL) [Concomitant]
  7. MAALOX [Concomitant]

REACTIONS (1)
  - CELLULITIS [None]
